FAERS Safety Report 6683292-8 (Version None)
Quarter: 2010Q2

REPORT INFORMATION
  Report Type: 
  Country: None (occurrence: None)
  Receive Date: 20100415
  Receipt Date: 20100407
  Transmission Date: 20101027
  Serious: Yes (Other)
  Sender: FDA-Public Use
  Company Number: US-GILEAD-2010-0027048

PATIENT
  Sex: Female
  Weight: 83.082 kg

DRUGS (18)
  1. LETAIRIS [Suspect]
     Indication: PULMONARY ARTERIAL HYPERTENSION
     Route: 048
     Dates: start: 20091223, end: 20100311
  2. ASPIRIN [Concomitant]
  3. CLONIDINE [Concomitant]
  4. LABETALOL HCL [Concomitant]
  5. NIFEDIPINE [Concomitant]
  6. ADVAIR DISKUS 100/50 [Concomitant]
  7. SPIRIVA [Concomitant]
  8. EFFEXOR [Concomitant]
  9. BACTRIM [Concomitant]
  10. CELLCEPT [Concomitant]
  11. SENSIPAR [Concomitant]
  12. SYNTHROID [Concomitant]
  13. PANTOPRAZOLE SODIUM [Concomitant]
  14. PROGRAF [Concomitant]
  15. SLOW-MAG [Concomitant]
  16. CALTRATE [Concomitant]
  17. CYANOCOBALAMIN [Concomitant]
  18. FERREX [Concomitant]

REACTIONS (6)
  - COMPLICATIONS OF TRANSPLANTED KIDNEY [None]
  - HAEMOGLOBIN DECREASED [None]
  - NASAL CONGESTION [None]
  - OEDEMA PERIPHERAL [None]
  - PALPITATIONS [None]
  - WEIGHT INCREASED [None]
